FAERS Safety Report 7935702-3 (Version None)
Quarter: 2011Q4

REPORT INFORMATION
  Report Type: 
  Country: None (occurrence: None)
  Receive Date: 20111121
  Receipt Date: 20111109
  Transmission Date: 20120403
  Serious: Yes (Life-Threatening, Hospitalization)
  Sender: FDA-Public Use
  Company Number: CC 2011-278

PATIENT
  Sex: Male
  Weight: 81.6475 kg

DRUGS (1)
  1. DIPHENHYDRAMINE HCL [Suspect]
     Indication: SLEEP DISORDER THERAPY
     Dosage: 50MG HS ORALLY
     Route: 048
     Dates: start: 20111104

REACTIONS (4)
  - APNOEA [None]
  - ALTERED STATE OF CONSCIOUSNESS [None]
  - MALAISE [None]
  - ABNORMAL BEHAVIOUR [None]
